FAERS Safety Report 5073034-4 (Version None)
Quarter: 2006Q3

REPORT INFORMATION
  Report Type: 
  Country: None (occurrence: None)
  Receive Date: 20060802
  Receipt Date: 20060719
  Transmission Date: 20061208
  Serious: Yes (Hospitalization)
  Sender: FDA-Public Use
  Company Number: US017857

PATIENT
  Sex: Female

DRUGS (1)
  1. PROVIGIL [Suspect]

REACTIONS (2)
  - CEREBROVASCULAR ACCIDENT [None]
  - FALL [None]
